FAERS Safety Report 8111433-4 (Version None)
Quarter: 2012Q1

REPORT INFORMATION
  Report Type: 
  Country: None (occurrence: None)
  Receive Date: 20120203
  Receipt Date: 20111212
  Transmission Date: 20120608
  Serious: No
  Sender: FDA-Public Use
  Company Number: US-GLAXOSMITHKLINE-A0957715A

PATIENT
  Age: 44 Year
  Sex: Female

DRUGS (3)
  1. LAMICTAL [Suspect]
     Indication: BIPOLAR DISORDER
     Dosage: 50MG TWICE PER DAY
     Route: 048
     Dates: start: 20111117
  2. BUSPIRONE HCL [Concomitant]
  3. ZOLOFT [Concomitant]

REACTIONS (6)
  - HEADACHE [None]
  - PSYCHOMOTOR HYPERACTIVITY [None]
  - POOR QUALITY SLEEP [None]
  - IMPAIRED DRIVING ABILITY [None]
  - ANXIETY [None]
  - AMNESIA [None]
